FAERS Safety Report 17094262 (Version 1)
Quarter: 2019Q4

REPORT INFORMATION
  Report Type: Spontaneous
  Country: FR (occurrence: FR)
  Receive Date: 20191129
  Receipt Date: 20191129
  Transmission Date: 20200122
  Serious: Yes (Hospitalization)
  Sender: FDA-Public Use
  Company Number: FR-009507513-1911FRA010557

PATIENT
  Age: 93 Year
  Sex: Female

DRUGS (2)
  1. NEURONTIN [Suspect]
     Active Substance: GABAPENTIN
     Indication: PRODUCT ADMINISTRATION ERROR
     Dosage: 1 DOSAGE FORM, ONCE
     Route: 048
     Dates: start: 20191013, end: 20191013
  2. NORSET [Suspect]
     Active Substance: MIRTAZAPINE
     Indication: PRODUCT ADMINISTRATION ERROR
     Dosage: 1 DOSAGE FORM, QD
     Route: 048
     Dates: start: 20191013, end: 20191013

REACTIONS (2)
  - Somnolence [Recovered/Resolved]
  - Wrong patient received product [Recovered/Resolved]

NARRATIVE: CASE EVENT DATE: 20191013
